FAERS Safety Report 24096569 (Version 3)
Quarter: 2024Q3

REPORT INFORMATION
  Report Type: Report from Study
  Country: NL (occurrence: NL)
  Receive Date: 20240716
  Receipt Date: 20240918
  Transmission Date: 20241016
  Serious: Yes (Other)
  Sender: ABBVIE
  Company Number: NL-ABBVIE-5542568

PATIENT
  Age: 69 Year
  Sex: Male

DRUGS (10)
  1. CARBIDOPA\LEVODOPA [Suspect]
     Active Substance: CARBIDOPA\LEVODOPA
     Indication: Parkinson^s disease
     Dosage: DURATION TEXT: REMAINS AT 16 HOURS
     Route: 050
     Dates: start: 20180122
  2. CARBIDOPA\LEVODOPA [Suspect]
     Active Substance: CARBIDOPA\LEVODOPA
     Dosage: MD: 15.0ML, CD: 4.8ML/H, ED: 2.0ML,?DURATION TEXT: REMAINS AT 16 HOURS
     Route: 050
     Dates: start: 20230808, end: 20231214
  3. CARBIDOPA\LEVODOPA [Suspect]
     Active Substance: CARBIDOPA\LEVODOPA
     Route: 050
  4. CARBIDOPA\LEVODOPA [Suspect]
     Active Substance: CARBIDOPA\LEVODOPA
     Dosage: MD: 11.6ML, CD: 4.8ML/H, ED: 2.0ML,?DURATION TEXT: REMAINS AT 16 HOURS
     Route: 050
     Dates: start: 20231214
  5. CARBIDOPA\LEVODOPA [Suspect]
     Active Substance: CARBIDOPA\LEVODOPA
     Dosage: DURATION TEXT: REMAINS AT 16 HOURS
     Route: 050
  6. CARBIDOPA\LEVODOPA [Suspect]
     Active Substance: CARBIDOPA\LEVODOPA
     Dosage: MD: 15.0 ML, CD: 4.8 ML/H, ED: 2.0 ML,
     Route: 050
  7. RIVASTIGMINE [Concomitant]
     Active Substance: RIVASTIGMINE
     Indication: Product used for unknown indication
  8. BENSERAZIDE HYDROCHLORIDE\LEVODOPA [Concomitant]
     Active Substance: BENSERAZIDE HYDROCHLORIDE\LEVODOPA
     Indication: Product used for unknown indication
  9. NEUPRO [Concomitant]
     Active Substance: ROTIGOTINE
     Indication: Parkinson^s disease
     Dosage: FORM STRENGTH: 10 MILLIGRAM
  10. CLOZAPINE [Concomitant]
     Active Substance: CLOZAPINE
     Indication: Hallucination

REACTIONS (26)
  - Embedded device [Recovered/Resolved]
  - Off label use [Not Recovered/Not Resolved]
  - Device power source issue [Not Recovered/Not Resolved]
  - Device kink [Unknown]
  - Device occlusion [Recovered/Resolved]
  - Device kink [Recovered/Resolved]
  - Constipation [Recovered/Resolved]
  - Aphasia [Not Recovered/Not Resolved]
  - Unevaluable event [Not Recovered/Not Resolved]
  - Intentional product use issue [Recovered/Resolved]
  - Loss of personal independence in daily activities [Not Recovered/Not Resolved]
  - Stoma site erythema [Not Recovered/Not Resolved]
  - Incoherent [Not Recovered/Not Resolved]
  - Restlessness [Not Recovered/Not Resolved]
  - Poor quality sleep [Not Recovered/Not Resolved]
  - Stoma site infection [Not Recovered/Not Resolved]
  - Cognitive disorder [Not Recovered/Not Resolved]
  - Delusion [Not Recovered/Not Resolved]
  - Hallucination [Not Recovered/Not Resolved]
  - Stoma site haemorrhage [Recovering/Resolving]
  - Device issue [Not Recovered/Not Resolved]
  - Device issue [Recovered/Resolved]
  - Fluid intake reduced [Not Recovered/Not Resolved]
  - Device use issue [Not Recovered/Not Resolved]
  - Agitation [Not Recovered/Not Resolved]
  - Restlessness [Not Recovered/Not Resolved]

NARRATIVE: CASE EVENT DATE: 20230101
